FAERS Safety Report 20595513 (Version 1)
Quarter: 2022Q1

REPORT INFORMATION
  Report Type: Spontaneous
  Country: US (occurrence: None)
  Receive Date: 20220314
  Receipt Date: 20220314
  Transmission Date: 20220423
  Serious: Yes (Hospitalization, Other)
  Sender: FDA-Public Use
  Company Number: None

PATIENT
  Age: 41 Year
  Sex: Female
  Weight: 72 kg

DRUGS (1)
  1. MAGNESIUM SULFATE [Suspect]
     Active Substance: MAGNESIUM SULFATE
     Indication: Pre-eclampsia
     Dosage: OTHER FREQUENCY : CONTINUOUS IV DRIP;?
     Route: 042
     Dates: start: 2022, end: 20220308

REACTIONS (9)
  - Maternal exposure during pregnancy [None]
  - Foetal exposure during pregnancy [None]
  - Anuria [None]
  - Blood magnesium increased [None]
  - Perineal injury [None]
  - Hypotonia [None]
  - Hypotension [None]
  - Overdose [None]
  - Congenital anomaly [None]

NARRATIVE: CASE EVENT DATE: 20220207
